FAERS Safety Report 4896108-7 (Version None)
Quarter: 2005Q4

REPORT INFORMATION
  Report Type: 
  Country: None (occurrence: None)
  Receive Date: 20051220
  Receipt Date: 20050914
  Transmission Date: 20060501
  Serious: Yes (Other)
  Sender: FDA-Public Use
  Company Number: US146998

PATIENT
  Age: 55 Year
  Sex: Male

DRUGS (1)
  1. ENBREL [Suspect]
     Indication: PSORIASIS
     Dosage: 50 MG, 2 IN 1 WEEKS
     Dates: start: 20040831

REACTIONS (4)
  - CONDITION AGGRAVATED [None]
  - CONTUSION [None]
  - HERPES SIMPLEX [None]
  - SQUAMOUS CELL CARCINOMA [None]
